FAERS Safety Report 8812279 (Version 2)
Quarter: 2014Q3

REPORT INFORMATION
  Report Type: Report from Study
  Country: US (occurrence: US)
  Receive Date: 20120927
  Receipt Date: 20140818
  Transmission Date: 20150326
  Serious: Yes (Other)
  Sender: FDA-Public Use
  Company Number: US-ROCHE-1104190

PATIENT
  Sex: Male
  Weight: 90 kg

DRUGS (5)
  1. AVASTIN [Suspect]
     Active Substance: BEVACIZUMAB
     Indication: RETROPERITONEAL CANCER
  2. LEUCOVORIN [Concomitant]
     Active Substance: LEUCOVORIN
  3. CAMPTOSAR [Concomitant]
     Active Substance: IRINOTECAN HYDROCHLORIDE
  4. AVASTIN [Suspect]
     Active Substance: BEVACIZUMAB
     Indication: MALIGNANT PERITONEAL NEOPLASM
     Route: 042
     Dates: start: 20060815
  5. 5-FU [Concomitant]
     Active Substance: FLUOROURACIL

REACTIONS (6)
  - Decreased appetite [Unknown]
  - Gastrointestinal disorder [Unknown]
  - Haemorrhagic ascites [Unknown]
  - Metastatic neoplasm [Unknown]
  - Weight decreased [Unknown]
  - Off label use [Unknown]
